FAERS Safety Report 10420138 (Version 1)
Quarter: 2014Q3

REPORT INFORMATION
  Report Type: Spontaneous
  Country: US (occurrence: None)
  Receive Date: 20140812
  Receipt Date: 20140812
  Transmission Date: 20150326
  Serious: Yes (Life-Threatening, Hospitalization, Disabling, Other)
  Sender: FDA-Public Use
  Company Number: 003-219

PATIENT
  Age: 27 Year
  Sex: Female

DRUGS (1)
  1. CROFAB [Suspect]
     Active Substance: CROTALIDAE POLYVALENT IMMUNE FAB (OVINE)
     Indication: SNAKE BITE
     Dates: start: 20140801

REACTIONS (4)
  - Dyspnoea [None]
  - Diplegia [None]
  - Hemiparesis [None]
  - Sensory loss [None]

NARRATIVE: CASE EVENT DATE: 20140801
